FAERS Safety Report 10729394 (Version 1)
Quarter: 2015Q1

REPORT INFORMATION
  Report Type: Spontaneous
  Country: FR (occurrence: FR)
  Receive Date: 20150122
  Receipt Date: 20150122
  Transmission Date: 20150721
  Serious: Yes (Hospitalization)
  Sender: FDA-Public Use
  Company Number: FR-DSJP-DSE-2015-101752

PATIENT

DRUGS (3)
  1. SEROPLEX [Suspect]
     Active Substance: ESCITALOPRAM OXALATE
     Indication: SUICIDE ATTEMPT
     Dosage: 1 DF, SINGLE
     Route: 048
     Dates: start: 20140317, end: 20140317
  2. ALPRAZOLAM. [Suspect]
     Active Substance: ALPRAZOLAM
     Indication: SUICIDE ATTEMPT
     Dosage: 0.5 MG, SINGLE
     Dates: start: 20140317, end: 20140317
  3. OLMETEC 10 MG [Suspect]
     Active Substance: OLMESARTAN MEDOXOMIL
     Indication: SUICIDE ATTEMPT
     Dosage: 10 MG, SINGLE
     Route: 048
     Dates: start: 20140317, end: 20140317

REACTIONS (2)
  - Miosis [Recovered/Resolved]
  - Coma [Recovered/Resolved]

NARRATIVE: CASE EVENT DATE: 20140317
